FAERS Safety Report 8481764-7 (Version None)
Quarter: 2012Q2

REPORT INFORMATION
  Report Type: 
  Country: None (occurrence: None)
  Receive Date: 20120402
  Receipt Date: 20091216
  Transmission Date: 20120825
  Serious: Yes (Hospitalization)
  Sender: FDA-Public Use
  Company Number: PHEH2009US17979

PATIENT

DRUGS (1)
  1. EXFORGE HCT [Suspect]

REACTIONS (1)
  - HYPOTENSION [None]
